FAERS Safety Report 4975124-0 (Version None)
Quarter: 2006Q2

REPORT INFORMATION
  Report Type: 
  Country: None (occurrence: None)
  Receive Date: 20060418
  Receipt Date: 20060413
  Transmission Date: 20061013
  Serious: Yes (Hospitalization)
  Sender: FDA-Public Use
  Company Number: CH-SP-2006-00872

PATIENT
  Age: 76 Year
  Sex: Male
  Weight: 77 kg

DRUGS (2)
  1. IMMUCYST [Suspect]
     Indication: BLADDER CANCER
     Route: 043
     Dates: start: 20050627
  2. IMMUCYST [Suspect]
     Route: 043
     Dates: start: 20050627

REACTIONS (2)
  - NIGHT SWEATS [None]
  - PYREXIA [None]
